FAERS Safety Report 19081131 (Version 1)
Quarter: 2021Q1

REPORT INFORMATION
  Report Type: Spontaneous
  Country: US (occurrence: US)
  Receive Date: 20210331
  Receipt Date: 20210331
  Transmission Date: 20210420
  Serious: No
  Sender: FDA-Public Use
  Company Number: US-009507513-2103USA008333

PATIENT
  Sex: Female

DRUGS (4)
  1. LENVATINIB MESYLATE [Suspect]
     Active Substance: LENVATINIB MESYLATE
     Indication: UTERINE CANCER
     Dosage: 20 MILLIGRAM DOSE
     Dates: start: 20210215, end: 2021
  2. PFIZER?BIONTECH COVID?19 VACCINE [Suspect]
     Active Substance: TOZINAMERAN
     Dosage: SECOND DOSE
     Dates: start: 20210222
  3. KEYTRUDA [Suspect]
     Active Substance: PEMBROLIZUMAB
  4. LENVATINIB MESYLATE [Suspect]
     Active Substance: LENVATINIB MESYLATE
     Indication: PULMONARY MASS
     Dosage: 10 MILLIGRAMS DAILY
     Dates: start: 20210309

REACTIONS (8)
  - Cognitive disorder [Unknown]
  - Dyspnoea [Unknown]
  - Discomfort [Unknown]
  - Arthritis [Unknown]
  - Ill-defined disorder [Unknown]
  - Glossodynia [Unknown]
  - Blood pressure abnormal [Unknown]
  - Pain [Unknown]

NARRATIVE: CASE EVENT DATE: 2021
